FAERS Safety Report 16121245 (Version 1)
Quarter: 2019Q1

REPORT INFORMATION
  Report Type: Spontaneous
  Country: GB (occurrence: GB)
  Receive Date: 20190327
  Receipt Date: 20190327
  Transmission Date: 20190418
  Serious: Yes (Other)
  Sender: FDA-Public Use
  Company Number: GB-ACCORD-115059

PATIENT
  Age: 5 Year
  Sex: Female
  Weight: 23 kg

DRUGS (1)
  1. METHOTREXATE. [Suspect]
     Active Substance: METHOTREXATE
     Indication: POLYARTHRITIS
     Dosage: 7.5 MG, UNK
     Route: 048
     Dates: start: 20060714, end: 20090401

REACTIONS (1)
  - Juvenile idiopathic arthritis [Not Recovered/Not Resolved]

NARRATIVE: CASE EVENT DATE: 20091125
